FAERS Safety Report 16904539 (Version 1)
Quarter: 2019Q4

REPORT INFORMATION
  Report Type: Spontaneous
  Country: US (occurrence: US)
  Receive Date: 20191010
  Receipt Date: 20191010
  Transmission Date: 20200122
  Serious: No
  Sender: FDA-Public Use
  Company Number: US-CHILTERN-US-2019-000749

PATIENT
  Sex: Female

DRUGS (1)
  1. ROCKLATAN [Suspect]
     Active Substance: LATANOPROST\NETARSUDIL MESYLATE
     Dosage: UNK
     Route: 047

REACTIONS (4)
  - Gastrooesophageal reflux disease [Unknown]
  - Withdrawal syndrome [Unknown]
  - Dizziness [Unknown]
  - Hypertension [Unknown]
